FAERS Safety Report 7013703-X (Version None)
Quarter: 2010Q3

REPORT INFORMATION
  Report Type: 
  Country: None (occurrence: None)
  Receive Date: 20100924
  Receipt Date: 20100921
  Transmission Date: 20110219
  Serious: No
  Sender: FDA-Public Use
  Company Number: US-TEVA-249308USA

PATIENT
  Sex: Female

DRUGS (1)
  1. COPAXONE [Suspect]
     Route: 058
     Dates: start: 20100801

REACTIONS (1)
  - INJECTION SITE URTICARIA [None]
